FAERS Safety Report 9769074 (Version 2)
Quarter: 2013Q4

REPORT INFORMATION
  Report Type: Report from Study
  Country: US (occurrence: US)
  Receive Date: 20131218
  Receipt Date: 20131219
  Transmission Date: 20140711
  Serious: Yes (Hospitalization)
  Sender: FDA-Public Use
  Company Number: US-JNJFOC-20131206444

PATIENT
  Age: 20 Year
  Sex: Male
  Weight: 65.2 kg

DRUGS (8)
  1. REMICADE [Suspect]
     Indication: CROHN^S DISEASE
     Route: 042
  2. HUMIRA [Concomitant]
     Route: 065
     Dates: start: 20130829
  3. 5-ASA [Concomitant]
     Route: 048
  4. PROBIOTICS [Concomitant]
     Route: 065
  5. PEPTAMEN [Concomitant]
     Route: 065
  6. PREVACID [Concomitant]
     Route: 065
  7. IRON [Concomitant]
     Route: 065
  8. ZOFRAN [Concomitant]
     Route: 065

REACTIONS (1)
  - Vomiting [Recovered/Resolved]
